FAERS Safety Report 8783464 (Version 2)
Quarter: 2012Q4

REPORT INFORMATION
  Report Type: 
  Country: CH (occurrence: CH)
  Receive Date: 20120913
  Receipt Date: 20120913
  Transmission Date: 20130627
  Serious: Yes (Life-Threatening, Hospitalization)
  Sender: FDA-Public Use
  Company Number: PHHY2012CH054734

PATIENT
  Age: 65 Year
  Sex: Male
  Weight: 78 kg

DRUGS (10)
  1. LUCENTIS [Suspect]
     Indication: AGE-RELATED MACULAR DEGENERATION
     Dosage: 0.05 ml, UNK
     Dates: start: 20120507
  2. LUCENTIS [Suspect]
     Route: 031
     Dates: start: 20120618
  3. METO ZEROK [Suspect]
     Indication: ESSENTIAL HYPERTENSION
     Dosage: 50 mg, UNK
     Route: 048
  4. INDAPAMIDE W/PERINDOPRIL [Suspect]
     Indication: ESSENTIAL HYPERTENSION
     Dosage: 1 DF (0.5 per 1 day)
     Route: 048
     Dates: end: 201206
  5. ASPIRIN CARDIO [Concomitant]
     Dosage: 100 mg per day
     Route: 048
  6. PRAVASTATIN [Concomitant]
     Dosage: 40 mg per day
     Route: 048
  7. HUMALOG [Concomitant]
     Dosage: 1 DF, PRN
     Route: 058
  8. LANTUS [Concomitant]
     Dosage: 1 DF per day
     Route: 058
  9. VISCOTEARS [Concomitant]
     Dosage: 1 gtt, QID
     Route: 057
     Dates: start: 20120618, end: 20120622
  10. TOBREX [Concomitant]
     Dosage: 1 gtt, QID
     Route: 057
     Dates: start: 20120618, end: 20120622

REACTIONS (3)
  - Acute myocardial infarction [Recovered/Resolved]
  - Coronary artery thrombosis [None]
  - Coronary artery stenosis [None]
